FAERS Safety Report 7440384-3 (Version None)
Quarter: 2011Q2

REPORT INFORMATION
  Report Type: 
  Country: None (occurrence: None)
  Receive Date: 20110427
  Receipt Date: 20110422
  Transmission Date: 20111010
  Serious: No
  Sender: FDA-Public Use
  Company Number: US-PFIZER INC-2011088091

PATIENT
  Sex: Female

DRUGS (5)
  1. MONTELUKAST [Concomitant]
     Dosage: 10 MG, UNK
  2. PREMARIN [Suspect]
     Indication: POSTMENOPAUSE
     Dosage: 0.625 MG, DAILY
     Route: 067
     Dates: start: 20110414
  3. DETROL LA [Concomitant]
     Dosage: 4 MG, UNK
  4. CIPROFLOXACIN [Concomitant]
     Dosage: 250 MG, UNK
  5. LITHIUM CARBONATE [Concomitant]
     Dosage: 300 MG, UNK

REACTIONS (1)
  - HYPERSENSITIVITY [None]
